FAERS Safety Report 14688486 (Version 1)
Quarter: 2018Q1

REPORT INFORMATION
  Report Type: Report from Study
  Country: IL (occurrence: IL)
  Receive Date: 20180328
  Receipt Date: 20180328
  Transmission Date: 20180509
  Serious: Yes (Death)
  Sender: FDA-Public Use
  Company Number: PHHY2018IL050661

PATIENT
  Age: 71 Year
  Sex: Female

DRUGS (1)
  1. COSENTYX [Suspect]
     Active Substance: SECUKINUMAB
     Indication: PSORIASIS
     Dosage: UNK UNK, QMO
     Route: 058
     Dates: start: 20160705

REACTIONS (9)
  - Malaise [Unknown]
  - Fall [Unknown]
  - Upper limb fracture [Unknown]
  - Death [Fatal]
  - Dizziness [Unknown]
  - Faeces discoloured [Unknown]
  - Ear haemorrhage [Unknown]
  - Inappropriate schedule of drug administration [Unknown]
  - Injury [Unknown]

NARRATIVE: CASE EVENT DATE: 201803
